FAERS Safety Report 5497406-9 (Version None)
Quarter: 2007Q4

REPORT INFORMATION
  Report Type: 
  Country: None (occurrence: None)
  Receive Date: 20071025
  Receipt Date: 20070417
  Transmission Date: 20080405
  Serious: No
  Sender: FDA-Public Use
  Company Number: US-BRISTOL-MYERS SQUIBB COMPANY-13750666

PATIENT
  Sex: Female
  Weight: 79 kg

DRUGS (4)
  1. GLUCOPHAGE XR [Suspect]
     Indication: DIABETES MELLITUS
     Route: 048
     Dates: start: 20000101
  2. LOTREL [Concomitant]
  3. TYLENOL (CAPLET) [Concomitant]
  4. VALIUM [Concomitant]

REACTIONS (3)
  - ANOREXIA [None]
  - LIMB DISCOMFORT [None]
  - WEIGHT DECREASED [None]
